FAERS Safety Report 6679261-4 (Version None)
Quarter: 2010Q2

REPORT INFORMATION
  Report Type: 
  Country: None (occurrence: None)
  Receive Date: 20100413
  Receipt Date: 20100402
  Transmission Date: 20101027
  Serious: Yes (Other)
  Sender: FDA-Public Use
  Company Number: IN-PFIZER INC-2010042618

PATIENT
  Sex: Male

DRUGS (1)
  1. CYKLOKAPRON [Suspect]
     Indication: SURGERY
     Dosage: 500 MG, UNK
     Route: 042

REACTIONS (1)
  - POST PROCEDURAL HAEMORRHAGE [None]
